FAERS Safety Report 16311994 (Version 2)
Quarter: 2020Q2

REPORT INFORMATION
  Report Type: Spontaneous
  Country: BR (occurrence: BR)
  Receive Date: 20190515
  Receipt Date: 20200513
  Transmission Date: 20200713
  Serious: Yes (Death, Other)
  Sender: FDA-Public Use
  Company Number: BR-SUN PHARMACEUTICAL INDUSTRIES LTD-2019R1-207839

PATIENT
  Age: 56 Year
  Sex: Female

DRUGS (2)
  1. PACLITAXEL. [Suspect]
     Active Substance: PACLITAXEL
     Indication: UTERINE CANCER
     Dosage: 175 MILLIGRAM/SQ. METER (6 CYCLES)
     Route: 042
     Dates: start: 2009, end: 200910
  2. CARBOPLATIN. [Suspect]
     Active Substance: CARBOPLATIN
     Indication: UTERINE CANCER
     Dosage: UNK (6 CYCLES) AREA UNDER THE CURVE (AUC) 6
     Route: 042
     Dates: start: 2009, end: 200910

REACTIONS (2)
  - Metastases to central nervous system [Fatal]
  - Headache [Unknown]
